FAERS Safety Report 9647706 (Version 2)
Quarter: 2013Q4

REPORT INFORMATION
  Report Type: Spontaneous
  Country: FR (occurrence: FR)
  Receive Date: 20131028
  Receipt Date: 20131028
  Transmission Date: 20140711
  Serious: Yes (Death, Other)
  Sender: FDA-Public Use
  Company Number: FR-CELGENEUS-056-20785-11040705

PATIENT
  Sex: 0

DRUGS (10)
  1. THALIDOMIDE [Suspect]
     Indication: PLASMA CELL MYELOMA
     Dosage: 50 MILLIGRAM
     Route: 048
  2. MELPHALAN [Concomitant]
     Indication: PLASMA CELL MYELOMA
     Route: 065
  3. PREDNISONE [Concomitant]
     Indication: PLASMA CELL MYELOMA
     Route: 065
  4. BORTEZOMIB [Concomitant]
     Indication: PLASMA CELL MYELOMA
     Dosage: MILLIGRAM/SQ. METER
     Route: 065
  5. BORTEZOMIB [Concomitant]
     Dosage: .1857 MILLIGRAM/SQ. METER
     Route: 065
  6. BORTEZOMIB [Concomitant]
     Dosage: .1857 MILLIGRAM/SQ. METER
     Route: 065
     Dates: start: 200703
  7. BORTEZOMIB [Concomitant]
     Dosage: .0929 MILLIGRAM/SQ. METER
     Route: 065
  8. ASPIRINE [Concomitant]
     Indication: THROMBOSIS PROPHYLAXIS
     Route: 065
  9. LMWH [Concomitant]
     Indication: THROMBOSIS PROPHYLAXIS
     Route: 065
  10. VITAMIN K ANTAGONISTS [Concomitant]
     Indication: THROMBOSIS PROPHYLAXIS
     Route: 065

REACTIONS (9)
  - Death [Fatal]
  - Haemorrhage [Unknown]
  - Coronary artery disease [Unknown]
  - Arrhythmia [Unknown]
  - Neutropenia [Unknown]
  - Cardiac failure [Unknown]
  - Deep vein thrombosis [Unknown]
  - Pulmonary embolism [Unknown]
  - Neuropathy peripheral [Unknown]
